FAERS Safety Report 9936659 (Version 1)
Quarter: 2014Q1

REPORT INFORMATION
  Report Type: Spontaneous
  Country: US (occurrence: US)
  Receive Date: 20140228
  Receipt Date: 20140228
  Transmission Date: 20141002
  Serious: No
  Sender: FDA-Public Use
  Company Number: US-SANOFI-AVENTIS-2013SA038439

PATIENT
  Age: 76 Year
  Sex: Female

DRUGS (3)
  1. GLYBURIDE [Suspect]
     Route: 065
  2. GLYBURIDE [Suspect]
  3. METFORMIN [Suspect]
     Route: 065

REACTIONS (6)
  - Night sweats [Recovering/Resolving]
  - Disorientation [Recovering/Resolving]
  - Adverse event [Recovered/Resolved]
  - Blood glucose fluctuation [Recovering/Resolving]
  - Drug ineffective [Unknown]
  - Product substitution issue [Unknown]
